FAERS Safety Report 8555724-1 (Version None)
Quarter: 2012Q3

REPORT INFORMATION
  Report Type: 
  Country: None (occurrence: None)
  Receive Date: 20120801
  Receipt Date: 20120723
  Transmission Date: 20120928
  Serious: Yes (Hospitalization)
  Sender: FDA-Public Use
  Company Number: US-MSD-1207USA010590

PATIENT

DRUGS (3)
  1. ZOCOR [Suspect]
     Route: 048
  2. TOPROL-XL [Suspect]
     Route: 048
  3. TRICOR [Suspect]

REACTIONS (3)
  - HEPATIC ENZYME INCREASED [None]
  - OSTEOARTHRITIS [None]
  - BLOOD TRIGLYCERIDES INCREASED [None]
